FAERS Safety Report 5145763-5 (Version None)
Quarter: 2006Q4

REPORT INFORMATION
  Report Type: 
  Country: None (occurrence: None)
  Receive Date: 20060915
  Receipt Date: 20060711
  Transmission Date: 20070319
  Serious: No
  Sender: FDA-Public Use
  Company Number: 2006RL000268

PATIENT
  Age: 86 Year
  Sex: Male
  Weight: 77.1115 kg

DRUGS (12)
  1. OMACOR [Suspect]
     Indication: BLOOD TRIGLYCERIDES INCREASED
     Dosage: SEE IMAGE
     Route: 048
     Dates: start: 20060101, end: 20060701
  2. OMACOR [Suspect]
     Indication: BLOOD TRIGLYCERIDES INCREASED
     Dosage: SEE IMAGE
     Route: 048
     Dates: start: 20060101, end: 20060701
  3. XANAX [Concomitant]
  4. LEXAPRO [Concomitant]
  5. ASPIRIN [Concomitant]
  6. TENORMIN [Concomitant]
  7. PRILOSEC [Concomitant]
  8. LASIX [Concomitant]
  9. MICARDIS [Concomitant]
  10. LIPITOR [Concomitant]
  11. ALLEGRA [Concomitant]
  12. SYNTHROID [Concomitant]

REACTIONS (3)
  - CONSTIPATION [None]
  - DRUG ADMINISTRATION ERROR [None]
  - MEDICATION ERROR [None]
